FAERS Safety Report 21655700 (Version 1)
Quarter: 2022Q4

REPORT INFORMATION
  Report Type: Report from Study
  Country: US (occurrence: US)
  Receive Date: 20221129
  Receipt Date: 20221129
  Transmission Date: 20230113
  Serious: No
  Sender: FDA-Public Use
  Company Number: US-ABBVIE-4162474

PATIENT
  Sex: Female

DRUGS (1)
  1. HUMIRA [Suspect]
     Active Substance: ADALIMUMAB
     Indication: Hidradenitis
     Dosage: FORM STRENGTH 40 MILLIGRAM
     Route: 058

REACTIONS (7)
  - Joint range of motion decreased [Unknown]
  - Nausea [Recovered/Resolved]
  - Injection site pain [Recovered/Resolved]
  - Oropharyngeal pain [Recovered/Resolved]
  - Feeling hot [Unknown]
  - Vomiting [Recovered/Resolved]
  - Product preparation error [Unknown]
